FAERS Safety Report 24783784 (Version 1)
Quarter: 2024Q4

REPORT INFORMATION
  Report Type: Spontaneous
  Country: CN (occurrence: CN)
  Receive Date: 20241227
  Receipt Date: 20241227
  Transmission Date: 20250114
  Serious: Yes (Other)
  Sender: AMGEN
  Company Number: CN-AMGEN-CHNSP2024253173

PATIENT

DRUGS (7)
  1. BLINCYTO [Suspect]
     Active Substance: BLINATUMOMAB
     Indication: B-cell type acute leukaemia
     Dosage: 5 MILLIGRAM/SQ. METER
     Route: 040
  2. CYCLOPHOSPHAMIDE [Concomitant]
     Active Substance: CYCLOPHOSPHAMIDE
     Dosage: 300 MILLIGRAM/SQ. METER, Q12H
     Route: 040
  3. MESNA [Concomitant]
     Active Substance: MESNA
     Dosage: 0.4 GRAM, Q4H
     Route: 040
  4. MESNA [Concomitant]
     Active Substance: MESNA
     Dosage: 0.4 GRAM, Q8H
     Route: 040
  5. VINCRISTINE [Concomitant]
     Active Substance: VINCRISTINE
     Dosage: 2 MILLIGRAM
     Route: 040
  6. DOXORUBICIN [Concomitant]
     Active Substance: DOXORUBICIN
     Dosage: 50 MILLIGRAM/SQ. METER
     Route: 040
  7. DEXAMETHASONE [Concomitant]
     Active Substance: DEXAMETHASONE
     Dosage: 40 MILLIGRAM, QD
     Route: 040

REACTIONS (2)
  - Liver injury [Unknown]
  - Renal injury [Unknown]
